FAERS Safety Report 7641021-5 (Version None)
Quarter: 2011Q3

REPORT INFORMATION
  Report Type: 
  Country: None (occurrence: None)
  Receive Date: 20110728
  Receipt Date: 20110714
  Transmission Date: 20111222
  Serious: Yes (Hospitalization)
  Sender: FDA-Public Use
  Company Number: JP-UCBSA-035422

PATIENT
  Sex: Female

DRUGS (10)
  1. KETOTIFEN FUMARATE [Concomitant]
     Dosage: ADEQUATE DOSE
     Dates: start: 20110304
  2. DIPYRIDAMOLE [Concomitant]
     Dates: start: 20100806
  3. CERTOLIZUMAB PEGOL [Suspect]
     Indication: RHEUMATOID ARTHRITIS
     Route: 058
     Dates: start: 20091030
  4. LOSARTAN POTASSIUM [Concomitant]
     Dates: start: 20090612
  5. AMBROXOL HYDROCHLORIDE [Concomitant]
     Dates: start: 20090904
  6. SULFASALAZINE [Concomitant]
     Dates: start: 20080722
  7. CLARITHROMYCIN [Concomitant]
     Dates: start: 20090612
  8. LOSARTAN POTASSIUM/HYDROCHLOROTHIAZIDE [Concomitant]
     Dosage: 1 TAB DAILY
     Dates: start: 20090313
  9. ROSUVASTATIN CALCIUM [Concomitant]
     Dates: start: 20081017
  10. KETOPROFEN [Concomitant]
     Dosage: ADEQUATE DOSE
     Dates: start: 20081001

REACTIONS (2)
  - PNEUMONIA [None]
  - ARTHRALGIA [None]
